FAERS Safety Report 7777535 (Version 3)
Quarter: 2014Q2

REPORT INFORMATION
  Report Type: Spontaneous
  Country: US (occurrence: US)
  Receive Date: 20110128
  Receipt Date: 20140411
  Transmission Date: 20141212
  Serious: Yes (Hospitalization, Other)
  Sender: FDA-Public Use
  Company Number: US-BAYER-2010-003090

PATIENT
  Age: 17 Year
  Sex: Female
  Weight: 68.03 kg

DRUGS (8)
  1. YASMIN [Suspect]
     Indication: MENSTRUATION IRREGULAR
     Dosage: UNK
     Dates: start: 200711
  2. SPRINTEC [Concomitant]
     Indication: UNEVALUABLE EVENT
     Dosage: UNK
     Route: 048
     Dates: start: 2008, end: 2010
  3. PROTONIX [Concomitant]
  4. LEXAPRO [Concomitant]
     Dosage: 10 MG, QD
  5. BENTYL [Concomitant]
     Dosage: 10 MG, TID
  6. PROVIGIL [Concomitant]
     Dosage: 200 MG, BID
  7. ENDOCET [Concomitant]
     Dosage: 7.5 MG, EVERY 4 HRS
  8. BENADRYL DECONGESTANT [Concomitant]
     Dosage: 1 EVERY 4 HRS

REACTIONS (4)
  - Gallbladder disorder [None]
  - Cholecystitis chronic [None]
  - Biliary dyskinesia [None]
  - Off label use [None]
